FAERS Safety Report 16879573 (Version 1)
Quarter: 2019Q4

REPORT INFORMATION
  Report Type: Spontaneous
  Country: US (occurrence: US)
  Receive Date: 20191003
  Receipt Date: 20191003
  Transmission Date: 20200122
  Serious: No
  Sender: FDA-Public Use
  Company Number: US-CURIUM-200900352

PATIENT
  Age: 41 Year
  Sex: Female

DRUGS (2)
  1. ULTRA-TECHNEKOW DTE [Suspect]
     Active Substance: TECHNETIUM TC-99M SODIUM PERTECHNETATE
     Dosage: UNK
     Dates: start: 20090518, end: 20090518
  2. TECHNETIUM TC-99M SESTAMIBI KIT [Suspect]
     Active Substance: TECHNETIUM TC-99M SESTAMIBI
     Dosage: UNK
     Dates: start: 20090518, end: 20090518

REACTIONS (2)
  - Injury associated with device [Recovered/Resolved]
  - Occupational exposure to radiation [Recovered/Resolved]

NARRATIVE: CASE EVENT DATE: 20090518
